FAERS Safety Report 10833746 (Version 2)
Quarter: 2015Q2

REPORT INFORMATION
  Report Type: Spontaneous
  Country: US (occurrence: US)
  Receive Date: 20150219
  Receipt Date: 20150423
  Transmission Date: 20150821
  Serious: No
  Sender: FDA-Public Use
  Company Number: US-009507513-1502USA001621

PATIENT
  Sex: Female
  Weight: 79.37 kg

DRUGS (1)
  1. ASMANEX [Suspect]
     Active Substance: MOMETASONE FUROATE
     Dosage: STRENGHT DOSE 220 UNITS NOT REPORTED. 2 PUFFS ONCE A DAY
     Route: 055
     Dates: start: 2012

REACTIONS (3)
  - No adverse event [Unknown]
  - Product container issue [Unknown]
  - Drug dose omission [Unknown]
